FAERS Safety Report 23793153 (Version 1)
Quarter: 2024Q2

REPORT INFORMATION
  Report Type: Spontaneous
  Country: JP (occurrence: JP)
  Receive Date: 20240429
  Receipt Date: 20240429
  Transmission Date: 20240715
  Serious: Yes (Other)
  Sender: FDA-Public Use
  Company Number: JP-ALKEM LABORATORIES LIMITED-JP-ALKEM-2023-11786

PATIENT
  Age: 41 Year
  Sex: Female
  Weight: 46 kg

DRUGS (1)
  1. DABIGATRAN ETEXILATE MESYLATE [Suspect]
     Active Substance: DABIGATRAN ETEXILATE MESYLATE
     Indication: Embolic stroke
     Dosage: 220 MG/DAY
     Route: 065

REACTIONS (2)
  - Cerebrovascular accident [Unknown]
  - Underdose [Unknown]
